FAERS Safety Report 24576465 (Version 3)
Quarter: 2025Q2

REPORT INFORMATION
  Report Type: Spontaneous
  Country: CA (occurrence: CA)
  Receive Date: 20241104
  Receipt Date: 20250630
  Transmission Date: 20250716
  Serious: Yes (Hospitalization)
  Sender: PFIZER
  Company Number: CA-PFIZER INC-202400292002

PATIENT
  Age: 75 Year
  Sex: Male

DRUGS (3)
  1. RITUXIMAB [Suspect]
     Active Substance: RITUXIMAB
     Indication: Granulomatosis with polyangiitis
     Route: 042
  2. RITUXIMAB [Suspect]
     Active Substance: RITUXIMAB
     Route: 042
  3. CORTISONE [Suspect]
     Active Substance: CORTISONE
     Route: 065

REACTIONS (4)
  - Fall [Recovering/Resolving]
  - Skin laceration [Recovering/Resolving]
  - Wound [Recovering/Resolving]
  - Contusion [Recovering/Resolving]
